FAERS Safety Report 14988624 (Version 2)
Quarter: 2019Q2

REPORT INFORMATION
  Report Type: Spontaneous
  Country: US (occurrence: US)
  Receive Date: 20180608
  Receipt Date: 20190417
  Transmission Date: 20190711
  Serious: No
  Sender: FDA-Public Use
  Company Number: US-VERTEX PHARMACEUTICALS-2018-003833

PATIENT
  Sex: Female

DRUGS (6)
  1. SYMDEKO [Suspect]
     Active Substance: IVACAFTOR\TEZACAFTOR
     Indication: CYSTIC FIBROSIS
     Dosage: UNK, BID
     Route: 048
     Dates: start: 2018
  2. LEVALBUTEROL                       /01419301/ [Concomitant]
     Active Substance: LEVALBUTEROL
     Dosage: UNK
  3. PULMOZYME [Concomitant]
     Active Substance: DORNASE ALFA
     Dosage: UNK
  4. DEKASOFT [Concomitant]
     Dosage: UNK
  5. CAYSTON [Concomitant]
     Active Substance: AZTREONAM
     Dosage: UNK
  6. TOBI [Concomitant]
     Active Substance: TOBRAMYCIN
     Dosage: UNK

REACTIONS (5)
  - Chest discomfort [Unknown]
  - Migraine [Recovered/Resolved]
  - Chest pain [Unknown]
  - Cough [Unknown]
  - Dyspnoea [Unknown]

NARRATIVE: CASE EVENT DATE: 2018
